FAERS Safety Report 10314899 (Version 1)
Quarter: 2014Q3

REPORT INFORMATION
  Report Type: Spontaneous
  Country: US (occurrence: US)
  Receive Date: 20140718
  Receipt Date: 20140718
  Transmission Date: 20150326
  Serious: No
  Sender: FDA-Public Use
  Company Number: US-GILEAD-2014-0108985

PATIENT
  Sex: Male
  Weight: 170 kg

DRUGS (2)
  1. SOVALDI [Suspect]
     Active Substance: SOFOSBUVIR
     Indication: HEPATITIS
     Dosage: UNK
     Route: 065
     Dates: start: 2014
  2. OLYSIO [Suspect]
     Active Substance: SIMEPREVIR
     Indication: HEPATITIS
     Dosage: 150 MG, QD
     Route: 048
     Dates: start: 2014

REACTIONS (4)
  - Cough [Unknown]
  - Bronchitis [Recovered/Resolved]
  - Off label use [Not Recovered/Not Resolved]
  - Oropharyngeal pain [Recovered/Resolved]

NARRATIVE: CASE EVENT DATE: 2014
